FAERS Safety Report 10986178 (Version 1)
Quarter: 2015Q2

REPORT INFORMATION
  Report Type: Spontaneous
  Country: None (occurrence: None)
  Receive Date: 20150403
  Receipt Date: 20150403
  Transmission Date: 20150821
  Serious: Yes (Disabling)
  Sender: FDA-Public Use
  Company Number: None

PATIENT
  Age: 26 Year
  Sex: Female
  Weight: 50 kg

DRUGS (2)
  1. CIPROFLOXACIN. [Suspect]
     Active Substance: CIPROFLOXACIN
     Indication: POSTOPERATIVE CARE
     Route: 048
     Dates: start: 20150204, end: 20150209
  2. OCP [Concomitant]

REACTIONS (3)
  - Headache [None]
  - Nerve injury [None]
  - Condition aggravated [None]

NARRATIVE: CASE EVENT DATE: 20150215
